FAERS Safety Report 10020901 (Version 1)
Quarter: 2014Q1

REPORT INFORMATION
  Report Type: Spontaneous
  Country: US (occurrence: None)
  Receive Date: 20140318
  Receipt Date: 20140318
  Transmission Date: 20141002
  Serious: Yes (Death, Hospitalization)
  Sender: FDA-Public Use
  Company Number: None

PATIENT
  Age: 1 Year
  Sex: Female
  Weight: 8.45 kg

DRUGS (1)
  1. THIOTEPA [Suspect]

REACTIONS (9)
  - Venoocclusive liver disease [None]
  - Respiratory failure [None]
  - Ascites [None]
  - Abdominal compartment syndrome [None]
  - Renal failure acute [None]
  - Fluid overload [None]
  - Hepatorenal syndrome [None]
  - Renal tubular necrosis [None]
  - Hypotension [None]
